FAERS Safety Report 14959304 (Version 1)
Quarter: 2018Q2

REPORT INFORMATION
  Report Type: Report from Study
  Country: GB (occurrence: GB)
  Receive Date: 20180531
  Receipt Date: 20180531
  Transmission Date: 20180711
  Serious: No
  Sender: FDA-Public Use
  Company Number: GB-JNJFOC-20180537844

PATIENT
  Sex: Male

DRUGS (2)
  1. BENEPALI [Concomitant]
     Active Substance: ETANERCEPT
     Route: 065
  2. STELARA [Suspect]
     Active Substance: USTEKINUMAB
     Indication: PSORIASIS
     Route: 058
     Dates: start: 2013

REACTIONS (1)
  - Liver function test increased [Unknown]
